FAERS Safety Report 25624648 (Version 1)
Quarter: 2025Q3

REPORT INFORMATION
  Report Type: Spontaneous
  Country: EU (occurrence: EU)
  Receive Date: 20250730
  Receipt Date: 20250730
  Transmission Date: 20251021
  Serious: Yes (Life-Threatening, Hospitalization, Other)
  Sender: JOHNSON AND JOHNSON
  Company Number: EU-JNJFOC-20250737468

PATIENT
  Age: 63 Year
  Sex: Female

DRUGS (5)
  1. DARZALEX [Suspect]
     Active Substance: DARATUMUMAB
     Indication: Plasma cell myeloma
     Route: 065
  2. CARFILZOMIB [Suspect]
     Active Substance: CARFILZOMIB
     Indication: Plasma cell myeloma
     Route: 065
  3. DEXAMETHASONE [Suspect]
     Active Substance: DEXAMETHASONE
     Indication: Plasma cell myeloma
     Route: 065
  4. ZOLEDRONIC ACID [Concomitant]
     Active Substance: ZOLEDRONIC ACID
     Indication: Hypercalcaemia
     Route: 065
  5. BORTEZOMIB [Concomitant]
     Active Substance: BORTEZOMIB
     Indication: Plasma cell myeloma
     Route: 065

REACTIONS (12)
  - Acute respiratory failure [Unknown]
  - Acute kidney injury [Unknown]
  - Pleural neoplasm [Unknown]
  - Hyperkalaemia [Unknown]
  - Anuria [Unknown]
  - Altered state of consciousness [Unknown]
  - Sinus tachycardia [Unknown]
  - Pulmonary mass [Unknown]
  - Abdominal pain [Unknown]
  - Osteolysis [Unknown]
  - Hypotension [Unknown]
  - Hypertension [Unknown]
